FAERS Safety Report 21543418 (Version 3)
Quarter: 2022Q4

REPORT INFORMATION
  Report Type: Spontaneous
  Country: US (occurrence: US)
  Receive Date: 20221102
  Receipt Date: 20221108
  Transmission Date: 20230112
  Serious: Yes (Hospitalization, Other)
  Sender: FDA-Public Use
  Company Number: US-MLMSERVICE-20221019-3863812-1

PATIENT
  Age: 60 Year
  Sex: Male

DRUGS (2)
  1. METHOTREXATE SODIUM [Suspect]
     Active Substance: METHOTREXATE SODIUM
     Indication: Retinopathy proliferative
     Dosage: 1 DF (400 MICROGRAMS/0.1 MILLILITER), WEEKLY (INTRAVITREAL USE)
  2. METHOTREXATE SODIUM [Suspect]
     Active Substance: METHOTREXATE SODIUM
     Dosage: REDUCED TO EVERY 2 WEEKS, FOR A TOTAL OF 11 INJECTIONS

REACTIONS (2)
  - Corneal toxicity [Recovered/Resolved]
  - Off label use [Unknown]
